FAERS Safety Report 8353819 (Version 5)
Quarter: 2012Q4

REPORT INFORMATION
  Report Type: 
  Country: US (occurrence: US)
  Receive Date: 20120125
  Receipt Date: 20121210
  Transmission Date: 20130627
  Serious: Yes (Hospitalization, Other)
  Sender: FDA-Public Use
  Company Number: US-PFIZER INC-2012015455

PATIENT
  Age: 45 Year
  Sex: Female
  Weight: 83.9 kg

DRUGS (10)
  1. EFFEXOR XR [Suspect]
     Indication: DEPRESSION
     Dosage: 375 mg, 1x/day
     Route: 048
  2. VENLAFAXINE HYDROCHLORIDE [Suspect]
     Indication: DEPRESSION
     Dosage: 375 mg, 1x/day
     Route: 048
  3. VENLAFAXINE HYDROCHLORIDE [Suspect]
     Indication: DEPRESSION
  4. PAMELOR [Suspect]
     Indication: DEPRESSION
     Dosage: UNK
  5. PROZAC [Suspect]
     Indication: DEPRESSION
     Dosage: UNK
  6. AVONEX [Suspect]
     Indication: MULTIPLE SCLEROSIS
     Dosage: UNK
  7. LEVOTHYROXINE [Concomitant]
     Indication: HYPOTHYROIDISM
     Dosage: 0.075 mg, 1x/day
  8. ROZEREM [Concomitant]
     Dosage: 8 mg, UNK
  9. VITAMIN D3 [Concomitant]
     Dosage: 50 IU, weekly
  10. VITAMIN K [Concomitant]
     Dosage: 1000 UNK, UNK

REACTIONS (20)
  - Drug ineffective [Unknown]
  - Road traffic accident [Unknown]
  - Multiple sclerosis [Unknown]
  - Diabetes mellitus [Unknown]
  - Depression [Unknown]
  - Weight increased [Unknown]
  - Anxiety [Unknown]
  - Back disorder [Unknown]
  - Abasia [Recovering/Resolving]
  - Mental impairment [Unknown]
  - Activities of daily living impaired [Unknown]
  - Visual impairment [Unknown]
  - Illusion [Unknown]
  - Nervousness [Unknown]
  - Malaise [Unknown]
  - Palpitations [Unknown]
  - Tremor [Unknown]
  - Heart rate increased [Unknown]
  - Communication disorder [Unknown]
  - Memory impairment [Unknown]
